FAERS Safety Report 6696237-1 (Version None)
Quarter: 2010Q2

REPORT INFORMATION
  Report Type: 
  Country: None (occurrence: None)
  Receive Date: 20100426
  Receipt Date: 20100413
  Transmission Date: 20101027
  Serious: Yes (Other)
  Sender: FDA-Public Use
  Company Number: CO-AMGEN-US407790

PATIENT
  Age: 64 Year
  Sex: Female

DRUGS (1)
  1. ENBREL [Suspect]
     Indication: RHEUMATOID ARTHRITIS
     Route: 058
     Dates: start: 20080730, end: 20090201

REACTIONS (4)
  - ALOPECIA [None]
  - HYPERSENSITIVITY [None]
  - PRURITUS GENERALISED [None]
  - SKIN REACTION [None]
